FAERS Safety Report 13828701 (Version 1)
Quarter: 2017Q3

REPORT INFORMATION
  Report Type: Spontaneous
  Country: US (occurrence: US)
  Receive Date: 20170802
  Receipt Date: 20170802
  Transmission Date: 20171127
  Serious: Yes (Death)
  Sender: FDA-Public Use
  Company Number: None

PATIENT
  Age: 74 Year
  Sex: Male
  Weight: 99.1 kg

DRUGS (6)
  1. WARFARIN [Suspect]
     Active Substance: WARFARIN
     Indication: PULMONARY EMBOLISM
     Route: 048
     Dates: start: 20170726
  2. WARFARIN [Suspect]
     Active Substance: WARFARIN
     Indication: ATRIAL FIBRILLATION
     Route: 048
     Dates: start: 20170726
  3. WARFARIN [Suspect]
     Active Substance: WARFARIN
     Indication: THROMBOSIS
     Route: 048
     Dates: start: 20170726
  4. WARFARIN [Suspect]
     Active Substance: WARFARIN
     Indication: DEEP VEIN THROMBOSIS
     Route: 048
     Dates: start: 20170726
  5. LOVENOX [Concomitant]
     Active Substance: ENOXAPARIN SODIUM
  6. CEFUROXIME. [Concomitant]
     Active Substance: CEFUROXIME

REACTIONS (2)
  - Retroperitoneal haemorrhage [None]
  - Shock [None]

NARRATIVE: CASE EVENT DATE: 20170731
